FAERS Safety Report 14113262 (Version 2)
Quarter: 2017Q4

REPORT INFORMATION
  Report Type: Spontaneous
  Country: US (occurrence: US)
  Receive Date: 20171023
  Receipt Date: 20171113
  Transmission Date: 20180321
  Serious: No
  Sender: FDA-Public Use
  Company Number: US-BIOGEN-2017BI00473886

PATIENT
  Sex: Male

DRUGS (1)
  1. TYSABRI [Suspect]
     Active Substance: NATALIZUMAB
     Indication: MULTIPLE SCLEROSIS
     Route: 065

REACTIONS (5)
  - Contusion [Unknown]
  - Foot fracture [Not Recovered/Not Resolved]
  - Loss of control of legs [Unknown]
  - Pain [Unknown]
  - Fall [Recovered/Resolved]
